FAERS Safety Report 22658170 (Version 1)
Quarter: 2023Q2

REPORT INFORMATION
  Report Type: Spontaneous
  Country: BR (occurrence: BR)
  Receive Date: 20230630
  Receipt Date: 20230630
  Transmission Date: 20230721
  Serious: Yes (Other)
  Sender: FDA-Public Use
  Company Number: BR-AMGEN-BRASP2023110695

PATIENT

DRUGS (1)
  1. PANITUMUMAB [Suspect]
     Active Substance: PANITUMUMAB
     Indication: Colorectal cancer metastatic
     Dosage: UNK
     Route: 065

REACTIONS (9)
  - Haemorrhage [Unknown]
  - Xerophthalmia [Unknown]
  - Pyogenic granuloma [Unknown]
  - Subcutaneous abscess [Unknown]
  - Palmar-plantar erythrodysaesthesia syndrome [Unknown]
  - Skin hyperpigmentation [Unknown]
  - Onycholysis [Unknown]
  - Trichomegaly [Unknown]
  - Constipation [Unknown]
